FAERS Safety Report 18035086 (Version 1)
Quarter: 2020Q3

REPORT INFORMATION
  Report Type: Spontaneous
  Country: US (occurrence: US)
  Receive Date: 20200717
  Receipt Date: 20200717
  Transmission Date: 20201103
  Serious: Yes (Other)
  Sender: FDA-Public Use
  Company Number: US-STRIDES ARCOLAB LIMITED-2020SP004398

PATIENT
  Age: 11 Year
  Sex: Male

DRUGS (2)
  1. METRONIDAZOLE. [Suspect]
     Active Substance: METRONIDAZOLE
     Indication: MENINGITIS BACTERIAL
  2. METRONIDAZOLE. [Suspect]
     Active Substance: METRONIDAZOLE
     Indication: FUSOBACTERIUM INFECTION
     Dosage: UNK
     Route: 048

REACTIONS (6)
  - Gait disturbance [Unknown]
  - Vertigo [Unknown]
  - Paraesthesia [Unknown]
  - Toxic encephalopathy [Recovered/Resolved]
  - Dizziness [Unknown]
  - Vomiting [Unknown]
